FAERS Safety Report 7170159-4 (Version None)
Quarter: 2010Q4

REPORT INFORMATION
  Report Type: 
  Country: None (occurrence: None)
  Receive Date: 20101217
  Receipt Date: 20101205
  Transmission Date: 20110411
  Serious: Yes (Other)
  Sender: FDA-Public Use
  Company Number: DE-CELGENEUS-062-21880-10070092

PATIENT
  Age: 50 Year
  Sex: Male
  Weight: 99 kg

DRUGS (8)
  1. REVLIMID [Suspect]
     Indication: MULTIPLE MYELOMA
     Route: 048
     Dates: start: 20091104
  2. CYCLOSPORINE [Concomitant]
     Indication: PROPHYLAXIS AGAINST GRAFT VERSUS HOST DISEASE
     Route: 065
  3. ACYCLOVIR [Concomitant]
     Indication: PROPHYLAXIS
     Route: 065
  4. COTRIM [Concomitant]
     Indication: PROPHYLAXIS
     Route: 065
  5. MAGNESIUM [Concomitant]
     Indication: PROPHYLAXIS
     Route: 065
  6. NORVASC [Concomitant]
     Route: 065
  7. BELOC ZOK [Concomitant]
     Route: 065
  8. PANTAZOL [Concomitant]
     Indication: PROPHYLAXIS
     Route: 065

REACTIONS (1)
  - ACUTE GRAFT VERSUS HOST DISEASE IN LIVER [None]
